FAERS Safety Report 6083483-3 (Version None)
Quarter: 2009Q1

REPORT INFORMATION
  Report Type: 
  Country: None (occurrence: None)
  Receive Date: 20090213
  Receipt Date: 20090213
  Transmission Date: 20090719
  Serious: Yes (Other)
  Sender: FDA-Public Use
  Company Number: None

PATIENT
  Age: 42 Year
  Sex: Female
  Weight: 58.9676 kg

DRUGS (2)
  1. AMBIEN [Suspect]
     Indication: INSOMNIA
     Dosage: 20 MG NIGHTLY PO
     Route: 048
     Dates: start: 20080901, end: 20081001
  2. AMBIEN [Suspect]
     Indication: INSOMNIA
     Dosage: 20 MG NIGHTLY PO
     Route: 048
     Dates: start: 20090101, end: 20090130

REACTIONS (5)
  - ABNORMAL DREAMS [None]
  - FATIGUE [None]
  - HYPERPHAGIA [None]
  - PRODUCT QUALITY ISSUE [None]
  - WEIGHT INCREASED [None]
